FAERS Safety Report 11472584 (Version 3)
Quarter: 2015Q4

REPORT INFORMATION
  Report Type: Spontaneous
  Country: US (occurrence: None)
  Receive Date: 20150908
  Receipt Date: 20151014
  Transmission Date: 20160304
  Serious: Yes (Hospitalization, Other)
  Sender: FDA-Public Use
  Company Number: ADR-2015-01651

PATIENT
  Age: 42 Year
  Sex: Female

DRUGS (2)
  1. CLONIDINE (INTRATHECAL) 344MCG/ML [Suspect]
     Active Substance: CLONIDINE
     Indication: SPINAL PAIN
  2. BACLOFEN INTRATHECAL 123MCG/ML [Suspect]
     Active Substance: BACLOFEN
     Indication: SPINAL PAIN

REACTIONS (2)
  - Pain [None]
  - Condition aggravated [None]
